FAERS Safety Report 17353428 (Version 1)
Quarter: 2020Q1

REPORT INFORMATION
  Report Type: Spontaneous
  Country: US (occurrence: US)
  Receive Date: 20200131
  Receipt Date: 20200131
  Transmission Date: 20200409
  Serious: No
  Sender: FDA-Public Use
  Company Number: US-JNJFOC-20200121192

PATIENT
  Age: 49 Year
  Sex: Female
  Weight: 55.84 kg

DRUGS (1)
  1. WOMENS ROGAINE UNSCENTED [Suspect]
     Active Substance: MINOXIDIL
     Indication: ALOPECIA
     Dosage: HALF A CUPFUL ONE TIME
     Route: 061
     Dates: start: 20200105

REACTIONS (3)
  - Application site pruritus [Recovered/Resolved]
  - Application site dryness [Recovered/Resolved]
  - Application site rash [Recovered/Resolved]

NARRATIVE: CASE EVENT DATE: 20200106
